FAERS Safety Report 9856055 (Version 4)
Quarter: 2014Q1

REPORT INFORMATION
  Report Type: Spontaneous
  Country: GB (occurrence: GB)
  Receive Date: 20140130
  Receipt Date: 20140310
  Transmission Date: 20141002
  Serious: Yes (Other)
  Sender: FDA-Public Use
  Company Number: PHFR2013GB006397

PATIENT
  Age: 51 Year
  Sex: Female
  Weight: 78.7 kg

DRUGS (3)
  1. CLOZARIL [Suspect]
     Indication: SCHIZOPHRENIA
     Dosage: 275 MG, DAILY (75 MG IN MORNING AND 200 MG AT NIGHT)
     Route: 048
     Dates: start: 20131008
  2. VENLAFAXINE [Concomitant]
     Dosage: 150 MG, DAILY
     Route: 048
  3. CALCICHEW D3 FORTE [Concomitant]
     Indication: BLOOD CALCIUM DECREASED
     Dosage: UNK UKN, UNK
     Route: 048

REACTIONS (4)
  - Liver function test abnormal [Recovered/Resolved]
  - Renal impairment [Recovered/Resolved]
  - Glomerular filtration rate decreased [Recovered/Resolved]
  - Creatinine renal clearance increased [Recovered/Resolved]
